FAERS Safety Report 12199169 (Version 1)
Quarter: 2016Q1

REPORT INFORMATION
  Report Type: Report from Study
  Country: ES (occurrence: ES)
  Receive Date: 20160322
  Receipt Date: 20160322
  Transmission Date: 20160526
  Serious: Yes (Hospitalization, Other)
  Sender: FDA-Public Use
  Company Number: ES-ASTELLAS-2016US005351

PATIENT
  Age: 55 Year
  Sex: Male

DRUGS (11)
  1. CARBOPLATIN. [Suspect]
     Active Substance: CARBOPLATIN
     Indication: LUNG NEOPLASM MALIGNANT
     Dosage: UNK UNK, EVERY 3 WEEKS (LAST DOSE PRIOR TO SAE ON 21-MAY-2014, 676 MG)
     Route: 042
     Dates: start: 20140428
  2. MORPHINE [Concomitant]
     Active Substance: MORPHINE
     Indication: CANCER PAIN
     Dosage: 20 MG, THRICE DAILY (1 IN 8 HOURS)
     Route: 048
     Dates: start: 20140519
  3. BEVACIZUMAB [Suspect]
     Active Substance: BEVACIZUMAB
     Indication: LUNG NEOPLASM MALIGNANT
     Dosage: UNK UNK, EVERY 3 WEEKS (START DATE OF LAST CYCLE - 21-MAY-2014, 540 MG)
     Route: 042
     Dates: start: 20140428
  4. ERLOTINIB [Suspect]
     Active Substance: ERLOTINIB
     Indication: LUNG NEOPLASM MALIGNANT
     Dosage: 150 MG, ONCE DAILY (DAY 5 - DAY 18,  LAST DOSE PRIOR TO SAE ON 03-JUN-2014)
     Dates: start: 20140502, end: 20140603
  5. CODEIN [Concomitant]
     Active Substance: CODEINE
     Indication: CANCER PAIN
     Dosage: 6.33 MG, EVERY 12 HOURS
     Route: 048
     Dates: start: 20140522
  6. DEXKETOPROFEN [Concomitant]
     Active Substance: DEXKETOPROFEN
     Indication: CANCER PAIN
     Dosage: 25 MG, THRICE DAILY (1 IN 8 HRS)
     Route: 048
     Dates: start: 20140522
  7. DEXKETOPROFEN [Concomitant]
     Active Substance: DEXKETOPROFEN
     Indication: MUSCULOSKELETAL CHEST PAIN
     Dosage: 50 MG, THRICE DAILY (1 IN 8 HRS)
     Route: 042
     Dates: start: 20140605
  8. LACTULOSE. [Concomitant]
     Active Substance: LACTULOSE
     Indication: CONSTIPATION
     Route: 048
     Dates: start: 20140522
  9. ERLOTINIB [Suspect]
     Active Substance: ERLOTINIB
     Dosage: UNK UNK, UNKNOWN FREQ.
     Route: 048
     Dates: start: 20140614
  10. PACLITAXEL. [Suspect]
     Active Substance: PACLITAXEL
     Indication: LUNG NEOPLASM MALIGNANT
     Dosage: UNK, EVERY 3 WEEKS (LAST DOSE PRIOR TO SAE ON 21-MAY-2014, 323.75 MG)
     Route: 042
     Dates: start: 20140428
  11. PREGABALIN. [Concomitant]
     Active Substance: PREGABALIN
     Indication: CANCER PAIN
     Route: 048
     Dates: start: 20140429

REACTIONS (2)
  - Ascites [Unknown]
  - Paraneoplastic syndrome [Recovered/Resolved with Sequelae]

NARRATIVE: CASE EVENT DATE: 20140604
